FAERS Safety Report 15643145 (Version 1)
Quarter: 2018Q4

REPORT INFORMATION
  Report Type: Spontaneous
  Country: DE (occurrence: DE)
  Receive Date: 20181121
  Receipt Date: 20181121
  Transmission Date: 20190205
  Serious: Yes (Other)
  Sender: FDA-Public Use
  Company Number: DE-UCBSA-2018051515

PATIENT
  Age: 25 Year
  Sex: Male
  Weight: 102 kg

DRUGS (2)
  1. ZONEGRAN [Concomitant]
     Active Substance: ZONISAMIDE
     Indication: EPILEPSY
     Dosage: 400 MG DAILY, DAUER DER ANWENDUNG: CA. 5 JAHRE
     Route: 048
  2. LEVETIRACETAM. [Suspect]
     Active Substance: LEVETIRACETAM
     Indication: EPILEPSY
     Dosage: 2000 MG DAILY, DAUER DER ANWENDUNG: CA. 5 JAHRE
     Route: 048

REACTIONS (2)
  - Product lot number issue [Unknown]
  - Epilepsy [Unknown]

NARRATIVE: CASE EVENT DATE: 201808
